FAERS Safety Report 20579671 (Version 7)
Quarter: 2023Q2

REPORT INFORMATION
  Report Type: Report from Study
  Country: CA (occurrence: CA)
  Receive Date: 20220310
  Receipt Date: 20230504
  Transmission Date: 20230722
  Serious: Yes (Other)
  Sender: FDA-Public Use
  Company Number: CA-NOVARTISPH-PHHY2018CA039407

PATIENT
  Age: 60 Year
  Sex: Female

DRUGS (8)
  1. ILARIS [Suspect]
     Active Substance: CANAKINUMAB
     Indication: Muckle-Wells syndrome
     Dosage: 150 MG, EVERY 7 WEEKS
     Route: 058
     Dates: start: 20170605
  2. ILARIS [Suspect]
     Active Substance: CANAKINUMAB
     Dosage: 150 MG, EVERY 6 WEEKS
     Route: 058
     Dates: start: 20220421
  3. ILARIS [Suspect]
     Active Substance: CANAKINUMAB
     Dosage: 150 MG, EVERY 8 WEEKS
     Route: 058
     Dates: start: 20230130
  4. ILARIS [Suspect]
     Active Substance: CANAKINUMAB
     Dosage: 150 MG, EVERY 7 WEEKS
     Route: 058
  5. BETADERM [Concomitant]
     Active Substance: BETAMETHASONE VALERATE
     Indication: Product used for unknown indication
     Dosage: UNK
     Route: 065
  6. REACTIN [Concomitant]
     Indication: Product used for unknown indication
     Dosage: 1 DOSAGE FORM
     Route: 065
     Dates: start: 2014
  7. TYLENOL [Concomitant]
     Active Substance: ACETAMINOPHEN
     Indication: Product used for unknown indication
     Dosage: 1 DOSAGE FORM (EXTRA STRENGTH)
     Route: 065
     Dates: start: 2000
  8. NAPROXEN [Concomitant]
     Active Substance: NAPROXEN
     Indication: Product used for unknown indication
     Dosage: 1 DOSAGE FORM
     Route: 061
     Dates: start: 2016

REACTIONS (20)
  - Cryopyrin associated periodic syndrome [Unknown]
  - Pyrexia [Unknown]
  - Chills [Unknown]
  - Conjunctivitis [Unknown]
  - Arthralgia [Unknown]
  - Rash [Unknown]
  - Serum amyloid A protein increased [Unknown]
  - Malaise [Unknown]
  - Myalgia [Unknown]
  - Presyncope [Unknown]
  - Skin disorder [Unknown]
  - Fatigue [Unknown]
  - Burning sensation [Unknown]
  - Urticaria [Unknown]
  - Condition aggravated [Unknown]
  - Herpes zoster [Unknown]
  - C-reactive protein increased [Unknown]
  - Weight decreased [Unknown]
  - Nasopharyngitis [Unknown]
  - Product use issue [Unknown]

NARRATIVE: CASE EVENT DATE: 20180220
